FAERS Safety Report 16439204 (Version 1)
Quarter: 2019Q2

REPORT INFORMATION
  Report Type: Spontaneous
  Country: US (occurrence: US)
  Receive Date: 20190617
  Receipt Date: 20190617
  Transmission Date: 20190711
  Serious: Yes (Other)
  Sender: FDA-Public Use
  Company Number: US-BAYER-2019-115299

PATIENT
  Sex: Female

DRUGS (2)
  1. MIRENA [Suspect]
     Active Substance: LEVONORGESTREL
     Dosage: 20 MCG/24HR, CONT
     Route: 015
     Dates: start: 20081001
  2. MIRENA [Suspect]
     Active Substance: LEVONORGESTREL

REACTIONS (8)
  - Vaginal haemorrhage [None]
  - Dizziness [None]
  - Menstruation irregular [None]
  - Embedded device [None]
  - Musculoskeletal discomfort [None]
  - Abdominal pain lower [None]
  - Genital haemorrhage [None]
  - Menorrhagia [None]
